FAERS Safety Report 14108810 (Version 1)
Quarter: 2017Q4

REPORT INFORMATION
  Report Type: Other
  Country: IT (occurrence: IT)
  Receive Date: 20171019
  Receipt Date: 20171019
  Transmission Date: 20180321
  Serious: Yes (Death)
  Sender: FDA-Public Use
  Company Number: IT-LEADING PHARMA-2030776

PATIENT
  Age: 76 Year
  Sex: Male

DRUGS (1)
  1. FUROSEMIDE TABLETS , 20 MG, 40 MG AND 80 MG [Suspect]
     Active Substance: FUROSEMIDE
     Indication: DIURETIC THERAPY

REACTIONS (2)
  - Hyponatraemia [None]
  - Encephalopathy [Fatal]
